FAERS Safety Report 4280473-8 (Version None)
Quarter: 2004Q1

REPORT INFORMATION
  Report Type: 
  Country: None (occurrence: None)
  Receive Date: 20040128
  Receipt Date: 20040128
  Transmission Date: 20041129
  Serious: No
  Sender: FDA-Public Use
  Company Number: None

PATIENT

DRUGS (3)
  1. AZITHROMYCIN [Suspect]
     Indication: INFECTION
     Dosage: 500 MG X 1, THEN 250 MG
  2. HYDROXYZINE [Suspect]
     Indication: ANXIETY
     Dosage: 25 MG Q 6 H PO
     Route: 048
  3. HYDROXYZINE [Suspect]
     Indication: PRURITUS
     Dosage: 25 MG Q 6 H PO
     Route: 048

REACTIONS (1)
  - HEPATITIS CHOLESTATIC [None]
